FAERS Safety Report 6435332-9 (Version None)
Quarter: 2009Q4

REPORT INFORMATION
  Report Type: 
  Country: None (occurrence: None)
  Receive Date: 20091110
  Receipt Date: 20091026
  Transmission Date: 20100525
  Serious: Yes (Death)
  Sender: FDA-Public Use
  Company Number: ES-GENENTECH-293410

PATIENT
  Age: 51 Year
  Sex: Female

DRUGS (1)
  1. MABTHERA [Suspect]
     Indication: B-CELL LYMPHOMA
     Route: 065

REACTIONS (1)
  - ENCEPHALITIS [None]
